FAERS Safety Report 24578725 (Version 4)
Quarter: 2025Q1

REPORT INFORMATION
  Report Type: Spontaneous
  Country: US (occurrence: US)
  Receive Date: 20241105
  Receipt Date: 20250203
  Transmission Date: 20250408
  Serious: No
  Sender: BIOVITRUM
  Company Number: US-BIOVITRUM-2024-US-014168

PATIENT
  Age: 81 Year
  Sex: Male

DRUGS (9)
  1. VONJO [Suspect]
     Active Substance: PACRITINIB
     Indication: Myeloproliferative neoplasm
     Route: 048
     Dates: start: 20240816
  2. VONJO [Suspect]
     Active Substance: PACRITINIB
     Route: 048
  3. VONJO [Suspect]
     Active Substance: PACRITINIB
     Route: 048
  4. CIPROFLOXACIN [Concomitant]
     Active Substance: CIPROFLOXACIN
     Indication: Product used for unknown indication
  5. LATANOPROST OPTHALMIC SOLUCTION [Concomitant]
     Indication: Product used for unknown indication
     Route: 047
  6. GABAPENTIN [Concomitant]
     Active Substance: GABAPENTIN
     Indication: Product used for unknown indication
  7. SODIUM CHLORIDE [Concomitant]
     Active Substance: SODIUM CHLORIDE
     Indication: Product used for unknown indication
  8. MENS 50+ ADVANTAGE VITAMIN [Concomitant]
     Indication: Product used for unknown indication
  9. CLOTRIMAZOLE AF EXT. CREAM 1% [Concomitant]
     Indication: Product used for unknown indication

REACTIONS (4)
  - Swelling face [Recovering/Resolving]
  - Peripheral swelling [Recovering/Resolving]
  - Off label use [Not Recovered/Not Resolved]
  - Infection [Unknown]
